FAERS Safety Report 18643071 (Version 6)
Quarter: 2021Q4

REPORT INFORMATION
  Report Type: Spontaneous
  Country: US (occurrence: US)
  Receive Date: 20201221
  Receipt Date: 20211102
  Transmission Date: 20220303
  Serious: Yes (Other)
  Sender: FDA-Public Use
  Company Number: US-PFIZER INC-2020105871

PATIENT
  Age: 85 Year
  Sex: Male
  Weight: 63.05 kg

DRUGS (5)
  1. TOVIAZ [Suspect]
     Active Substance: FESOTERODINE FUMARATE
     Indication: Micturition urgency
     Dosage: 8 MG, 2X/DAY
  2. TOVIAZ [Suspect]
     Active Substance: FESOTERODINE FUMARATE
     Indication: Urogenital disorder
     Dosage: UNK
  3. TOVIAZ [Suspect]
     Active Substance: FESOTERODINE FUMARATE
     Indication: Bladder disorder
     Dosage: 8 MG, 1X/DAY (
     Route: 048
  4. TOVIAZ [Suspect]
     Active Substance: FESOTERODINE FUMARATE
     Dosage: 8 MG, 3X/DAY 1 (ONE) TABLET ER 24 HR BY MOUTH DAILY X3 (THREE) X 90 (NINETY) TABLET)
  5. TOVIAZ [Suspect]
     Active Substance: FESOTERODINE FUMARATE
     Dosage: 8 MG, 1X/DAY (8MG, TABLET, BY MOUTH, ONCE AT NIGHT)
     Route: 048

REACTIONS (6)
  - Parkinson^s disease [Unknown]
  - Overdose [Unknown]
  - Physical product label issue [Unknown]
  - Mental disorder [Unknown]
  - Constipation [Not Recovered/Not Resolved]
  - Weight decreased [Unknown]
